FAERS Safety Report 16574778 (Version 1)
Quarter: 2019Q3

REPORT INFORMATION
  Report Type: Report from Study
  Country: ES (occurrence: ES)
  Receive Date: 20190715
  Receipt Date: 20190715
  Transmission Date: 20191004
  Serious: Yes (Hospitalization, Other)
  Sender: FDA-Public Use
  Company Number: ES-GILEAD-2019-0415745

PATIENT
  Age: 44 Year
  Sex: Male

DRUGS (17)
  1. ONDANSETRON [Concomitant]
     Active Substance: ONDANSETRON
  2. URSODESOXYCHOLIC ACID [Concomitant]
     Active Substance: URSODIOL
  3. ENOXAPARINA [Concomitant]
     Active Substance: ENOXAPARIN
  4. COTRIMOXAZOLE [Concomitant]
     Active Substance: SULFAMETHOXAZOLE\TRIMETHOPRIM
  5. ACICLOVIR [Concomitant]
     Active Substance: ACYCLOVIR
  6. PARACETAMOL [Concomitant]
     Active Substance: ACETAMINOPHEN
  7. CODEINA [Concomitant]
     Active Substance: CODEINE
  8. NACL [Concomitant]
     Active Substance: SODIUM CHLORIDE
     Dosage: 0.9%; 2000 MG TOTAL
     Dates: start: 20190624, end: 20190701
  9. DEXKETOPROFEN [Concomitant]
     Active Substance: DEXKETOPROFEN
  10. AXICABTAGENE CILOLEUCEL [Suspect]
     Active Substance: AXICABTAGENE CILOLEUCEL
     Indication: DIFFUSE LARGE B-CELL LYMPHOMA
     Dosage: UNK
     Route: 065
     Dates: start: 20190627, end: 20190627
  11. MAGNESIO [MAGNESIUM] [Concomitant]
  12. AZITHROMYCIN ANHYDROUS. [Concomitant]
     Active Substance: AZITHROMYCIN ANHYDROUS
  13. ALLOPURINOL. [Concomitant]
     Active Substance: ALLOPURINOL
  14. METOCLOPRAMIDA [METOCLOPRAMIDE] [Concomitant]
     Active Substance: METOCLOPRAMIDE
  15. FLUCONAZOLE. [Concomitant]
     Active Substance: FLUCONAZOLE
  16. MEROPENEM. [Concomitant]
     Active Substance: MEROPENEM
  17. FOLIC ACID. [Concomitant]
     Active Substance: FOLIC ACID

REACTIONS (2)
  - Cytokine release syndrome [Recovering/Resolving]
  - Disorientation [Recovered/Resolved]

NARRATIVE: CASE EVENT DATE: 20190628
